FAERS Safety Report 6531955-7 (Version None)
Quarter: 2010Q1

REPORT INFORMATION
  Report Type: 
  Country: None (occurrence: None)
  Receive Date: 20100107
  Receipt Date: 20100107
  Transmission Date: 20100710
  Serious: Yes (Life-Threatening, Hospitalization, Disabling)
  Sender: FDA-Public Use
  Company Number: None

PATIENT
  Sex: Male
  Weight: 71.6683 kg

DRUGS (1)
  1. DOXYCYCLINE HYCLATE [Suspect]
     Indication: BRONCHITIS
     Dosage: 1 CAPSULE TWICE A DAY PO
     Route: 048
     Dates: start: 20091030, end: 20091030

REACTIONS (8)
  - DYSPNOEA [None]
  - EYELID OEDEMA [None]
  - HYPERSENSITIVITY [None]
  - MUSCLE CONTRACTURE [None]
  - PRURITUS GENERALISED [None]
  - RASH [None]
  - SPEECH DISORDER [None]
  - VISUAL IMPAIRMENT [None]
